FAERS Safety Report 5638472-7 (Version None)
Quarter: 2008Q1

REPORT INFORMATION
  Report Type: 
  Country: None (occurrence: None)
  Receive Date: 20080226
  Receipt Date: 20070302
  Transmission Date: 20080703
  Serious: No
  Sender: FDA-Public Use
  Company Number: A0628716A

PATIENT
  Age: 45 Year
  Sex: Male

DRUGS (2)
  1. IMITREX [Suspect]
     Indication: MIGRAINE
     Dosage: 1INJ AS REQUIRED
     Route: 058
  2. ATENOLOL [Concomitant]

REACTIONS (4)
  - DRUG INEFFECTIVE [None]
  - NAUSEA [None]
  - OESOPHAGEAL DISCOMFORT [None]
  - PHARMACEUTICAL PRODUCT COMPLAINT [None]
